FAERS Safety Report 15081864 (Version 5)
Quarter: 2019Q1

REPORT INFORMATION
  Report Type: Spontaneous
  Country: US (occurrence: US)
  Receive Date: 20180628
  Receipt Date: 20190109
  Transmission Date: 20190417
  Serious: Yes (Congenital Anomaly, Other)
  Sender: FDA-Public Use
  Company Number: PHEH2018US025628

PATIENT
  Sex: Female

DRUGS (1)
  1. ZOFRAN [Suspect]
     Active Substance: ONDANSETRON HYDROCHLORIDE
     Indication: FOETAL EXPOSURE DURING PREGNANCY
     Dosage: MOTHER DOSE: 08 MG, QD
     Route: 064

REACTIONS (29)
  - Heart disease congenital [Unknown]
  - Deformity [Unknown]
  - Rhinorrhoea [Unknown]
  - Neck pain [Unknown]
  - Lymphadenitis [Unknown]
  - Rhinitis allergic [Unknown]
  - Dyspnoea [Unknown]
  - Chest pain [Unknown]
  - Anhedonia [Unknown]
  - Cough [Unknown]
  - Upper respiratory tract infection [Unknown]
  - Back pain [Unknown]
  - Generalised anxiety disorder [Unknown]
  - Conjunctivitis [Unknown]
  - Migraine [Unknown]
  - Congenital aortic valve incompetence [Unknown]
  - Tonsillar hypertrophy [Unknown]
  - Depression [Unknown]
  - Foetal exposure during pregnancy [Unknown]
  - Pyrexia [Unknown]
  - Headache [Unknown]
  - Bicuspid aortic valve [Unknown]
  - Pain [Unknown]
  - Jaundice [Unknown]
  - Speech disorder [Unknown]
  - Myalgia [Unknown]
  - Pharyngitis [Unknown]
  - Attention deficit/hyperactivity disorder [Unknown]
  - Emotional distress [Unknown]
